FAERS Safety Report 8957130 (Version 1)
Quarter: 2012Q4

REPORT INFORMATION
  Report Type: Report from Study
  Country: US (occurrence: US)
  Receive Date: 20121210
  Receipt Date: 20121210
  Transmission Date: 20130627
  Serious: Yes (Hospitalization, Other)
  Sender: FDA-Public Use
  Company Number: US-ROCHE-604317

PATIENT
  Age: 87 Year
  Sex: Male
  Weight: 66.2 kg

DRUGS (1)
  1. CAPECITABINE [Suspect]
     Indication: COLORECTAL CANCER
     Dosage: 1000 MG AM AND 1000 MG PM
     Route: 048

REACTIONS (4)
  - Constipation [Unknown]
  - Nausea [Unknown]
  - Skin exfoliation [Not Recovered/Not Resolved]
  - Lung neoplasm malignant [Unknown]
